APPROVED DRUG PRODUCT: DESMOPRESSIN ACETATE (NEEDS NO REFRIGERATION)
Active Ingredient: DESMOPRESSIN ACETATE
Strength: 0.01MG/SPRAY
Dosage Form/Route: SPRAY, METERED;NASAL
Application: A091345 | Product #001 | TE Code: AB
Applicant: ZYDUS PHARMACEUTICALS USA INC
Approved: Oct 3, 2017 | RLD: No | RS: No | Type: RX